FAERS Safety Report 14897395 (Version 1)
Quarter: 2018Q2

REPORT INFORMATION
  Report Type: Spontaneous
  Country: US (occurrence: US)
  Receive Date: 20180515
  Receipt Date: 20180515
  Transmission Date: 20180711
  Serious: Yes (Hospitalization, Other)
  Sender: FDA-Public Use
  Company Number: US-VIIV HEALTHCARE LIMITED-US2018GSK085337

PATIENT
  Sex: Male

DRUGS (1)
  1. TRIUMEQ [Suspect]
     Active Substance: ABACAVIR SULFATE\DOLUTEGRAVIR SODIUM\LAMIVUDINE
     Indication: HIV INFECTION
     Dosage: UNK
     Route: 048
     Dates: start: 20180111

REACTIONS (9)
  - Hypoaesthesia [Unknown]
  - Cough [Unknown]
  - Abdominal pain [Unknown]
  - Hospitalisation [Unknown]
  - Headache [Unknown]
  - Constipation [Recovered/Resolved]
  - Dyspnoea [Unknown]
  - Rash [Unknown]
  - Weight increased [Unknown]
